FAERS Safety Report 15598043 (Version 1)
Quarter: 2020Q3

REPORT INFORMATION
  Report Type: Spontaneous
  Country: GB (occurrence: GB)
  Receive Date: 20181108
  Receipt Date: 20181108
  Transmission Date: 20201104
  Serious: Yes (Other)
  Sender: FDA-Public Use
  Company Number: IND-GB-009507513-1810GBR013969

PATIENT
  Age: 46 Year
  Sex: Male
  Weight: 69.85 kg

DRUGS (5)
  1. COLCHICINE. [Concomitant]
     Active Substance: COLCHICINE
     Dosage: 2000 MILLIGRAM, QD
     Dates: start: 20180906
  2. SALIVIX [Concomitant]
     Dosage: USE AS DIRECTED.
     Dates: start: 20180921
  3. ETORICOXIB. [Suspect]
     Active Substance: ETORICOXIB
     Indication: APTYALISM
     Route: 048
  4. AMITRIPTYLINE HYDROCHLORIDE. [Concomitant]
     Active Substance: AMITRIPTYLINE HYDROCHLORIDE
     Dosage: TAKE 1 AT NIGHT FOR 1 WEEK THEN INCREASE TO TWO TABLETS AT NIGHT.
     Dates: start: 20180904
  5. DIAZEPAM. [Concomitant]
     Active Substance: DIAZEPAM
     Dates: start: 20180925

REACTIONS (2)
  - Dyspnoea [Unknown]
  - Angioedema [Recovering/Resolving]

NARRATIVE: CASE EVENT DATE: 20181005
